FAERS Safety Report 6056284-X (Version None)
Quarter: 2009Q1

REPORT INFORMATION
  Report Type: 
  Country: None (occurrence: None)
  Receive Date: 20090127
  Receipt Date: 20090127
  Transmission Date: 20090719
  Serious: No
  Sender: FDA-Public Use
  Company Number: None

PATIENT
  Age: 56 Year
  Sex: Male
  Weight: 85.7298 kg

DRUGS (4)
  1. MC CONTIN [Suspect]
     Indication: INTERVERTEBRAL DISC DEGENERATION
     Dosage: 60 ONCE Q12 PO
     Route: 048
     Dates: start: 20071109
  2. MC CONTIN [Suspect]
     Indication: SPINAL OSTEOARTHRITIS
     Dosage: 60 ONCE Q12 PO
     Route: 048
     Dates: start: 20071109
  3. ROXICODONE [Suspect]
     Indication: INTERVERTEBRAL DISC DEGENERATION
     Dosage: 30MG ONCE Q4 PO
     Route: 048
     Dates: start: 20070927
  4. ROXICODONE [Suspect]
     Indication: SPINAL OSTEOARTHRITIS
     Dosage: 30MG ONCE Q4 PO
     Route: 048
     Dates: start: 20070927

REACTIONS (3)
  - DRUG EFFECT DECREASED [None]
  - FEELING ABNORMAL [None]
  - THERAPEUTIC RESPONSE UNEXPECTED WITH DRUG SUBSTITUTION [None]
